FAERS Safety Report 21320660 (Version 5)
Quarter: 2025Q2

REPORT INFORMATION
  Report Type: Report from Study
  Country: BR (occurrence: BR)
  Receive Date: 20220912
  Receipt Date: 20250403
  Transmission Date: 20250717
  Serious: Yes (Hospitalization, Other)
  Sender: CELLTRION
  Company Number: BR-CELLTRION INC.-2022BR012751

PATIENT

DRUGS (6)
  1. INFLIXIMAB-DYYB [Suspect]
     Active Substance: INFLIXIMAB-DYYB
     Indication: Colitis ulcerative
     Route: 042
  2. INFLIXIMAB-DYYB [Suspect]
     Active Substance: INFLIXIMAB-DYYB
     Route: 042
     Dates: start: 20220804
  3. INFLIXIMAB-DYYB [Suspect]
     Active Substance: INFLIXIMAB-DYYB
     Route: 042
     Dates: start: 20220905
  4. INFLIXIMAB-DYYB [Suspect]
     Active Substance: INFLIXIMAB-DYYB
     Route: 042
     Dates: end: 20240207
  5. AZATHIOPRINE [Concomitant]
     Active Substance: AZATHIOPRINE
     Indication: Colitis ulcerative
     Route: 048
  6. MESALAMINE [Concomitant]
     Active Substance: MESALAMINE
     Indication: Colitis ulcerative
     Route: 048

REACTIONS (9)
  - Renal pain [Unknown]
  - Pain [Unknown]
  - Urinary tract infection [Recovered/Resolved]
  - Colitis ulcerative [Unknown]
  - Vomiting [Unknown]
  - Incorrect drug administration rate [Unknown]
  - Treatment delayed [Unknown]
  - Therapy responder [Unknown]
  - Intentional product use issue [Unknown]
